FAERS Safety Report 7273363-X (Version None)
Quarter: 2011Q1

REPORT INFORMATION
  Report Type: 
  Country: None (occurrence: None)
  Receive Date: 20110203
  Receipt Date: 20100929
  Transmission Date: 20110831
  Serious: No
  Sender: FDA-Public Use
  Company Number: US-ABBOTT-10P-163-0675538-00

PATIENT
  Sex: Female
  Weight: 63.56 kg

DRUGS (2)
  1. SYNTHROID [Suspect]
     Indication: HYPOTHYROIDISM
     Dates: start: 20100201
  2. VITAMIN D [Concomitant]
     Indication: BONE DISORDER
     Dates: start: 20090101

REACTIONS (2)
  - RASH [None]
  - RASH PRURITIC [None]
